FAERS Safety Report 7853802-3 (Version None)
Quarter: 2011Q4

REPORT INFORMATION
  Report Type: 
  Country: None (occurrence: None)
  Receive Date: 20111026
  Receipt Date: 20111019
  Transmission Date: 20120403
  Serious: Yes (Hospitalization)
  Sender: FDA-Public Use
  Company Number: FR-PFIZER INC-2011251216

PATIENT
  Age: 14 Year
  Sex: Female

DRUGS (4)
  1. NEXEN [Suspect]
     Indication: POISONING DELIBERATE
     Dosage: 800 MG, UNK
     Route: 048
     Dates: start: 20110111
  2. CEFPODOXIME PROXETIL [Suspect]
     Indication: POISONING DELIBERATE
     Dosage: 200 MG, UNK
     Route: 048
     Dates: start: 20110112
  3. IXEL [Suspect]
     Indication: POISONING DELIBERATE
     Dosage: 100 MG, UNK
     Route: 048
     Dates: start: 20110111
  4. XANAX [Suspect]
     Indication: POISONING DELIBERATE
     Dosage: 1 MG, UNK
     Route: 048
     Dates: start: 20110111

REACTIONS (3)
  - VOMITING [None]
  - INTENTIONAL OVERDOSE [None]
  - PSYCHOMOTOR SKILLS IMPAIRED [None]
